FAERS Safety Report 8241693 (Version 3)
Quarter: 2013Q2

REPORT INFORMATION
  Report Type: Spontaneous
  Country: SK (occurrence: SK)
  Receive Date: 20111111
  Receipt Date: 20130522
  Transmission Date: 20140414
  Serious: Yes (Other)
  Sender: FDA-Public Use
  Company Number: PHHY2011SK97037

PATIENT
  Age: 62 Year
  Sex: Male

DRUGS (1)
  1. WARFARIN [Suspect]
     Indication: CORONARY ARTERY DISEASE
     Dosage: 5 MG, LONG-TERM

REACTIONS (14)
  - Ileus [Recovered/Resolved]
  - Adenocarcinoma [Unknown]
  - Abdominal pain [Recovered/Resolved]
  - Inflammation [Recovered/Resolved]
  - Peritonitis [Recovered/Resolved]
  - Colitis ischaemic [Recovered/Resolved]
  - Alkalosis hypokalaemic [Recovered/Resolved]
  - Flatulence [Recovered/Resolved]
  - Paralysis [Recovered/Resolved]
  - Hypocoagulable state [Recovered/Resolved]
  - Anaphylactic shock [Recovered/Resolved]
  - Malignant neoplasm progression [Unknown]
  - Colonic haematoma [Recovered/Resolved]
  - International normalised ratio increased [Recovered/Resolved]
